FAERS Safety Report 13350980 (Version 1)
Quarter: 2017Q1

REPORT INFORMATION
  Report Type: Spontaneous
  Country: US (occurrence: US)
  Receive Date: 20170320
  Receipt Date: 20170320
  Transmission Date: 20170429
  Serious: No
  Sender: FDA-Public Use
  Company Number: US-PFIZER INC-2017114291

PATIENT
  Sex: Female

DRUGS (4)
  1. PENICILLIN G PROCAINE. [Suspect]
     Active Substance: PENICILLIN G PROCAINE
     Dosage: UNK
  2. CLINDAMYCIN HCL [Suspect]
     Active Substance: CLINDAMYCIN HYDROCHLORIDE
     Dosage: UNK
  3. SACCHARIN [Suspect]
     Active Substance: SACCHARIN
     Dosage: UNK
  4. SOBRIL [Suspect]
     Active Substance: OXAZEPAM
     Dosage: UNK

REACTIONS (1)
  - Drug hypersensitivity [Unknown]
